FAERS Safety Report 13558352 (Version 4)
Quarter: 2017Q3

REPORT INFORMATION
  Report Type: Report from Study
  Country: FR (occurrence: FR)
  Receive Date: 20170517
  Receipt Date: 20170829
  Transmission Date: 20171127
  Serious: Yes (Life-Threatening, Hospitalization, Other)
  Sender: FDA-Public Use
  Company Number: PHHO2016FR019073

PATIENT
  Age: 52 Year
  Sex: Female
  Weight: 80 kg

DRUGS (7)
  1. DEXAMETHASONE. [Suspect]
     Active Substance: DEXAMETHASONE
     Indication: CHEMOTHERAPY
     Dosage: 40 MG, ON D1, D8, D9, D15, D16
     Route: 048
     Dates: start: 20161114, end: 20161129
  2. AMN107 [Suspect]
     Active Substance: NILOTINIB
     Indication: PHILADELPHIA CHROMOSOME POSITIVE
     Dosage: 400 MG, BID D1 TO D21
     Route: 048
     Dates: start: 20161114, end: 20161202
  3. CYTARABINE. [Concomitant]
     Active Substance: CYTARABINE
     Indication: PRODUCT USED FOR UNKNOWN INDICATION
     Dosage: 40 MG, ON D1, D8, D15
     Route: 037
     Dates: start: 20161114, end: 20161128
  4. METHOTREXATE. [Concomitant]
     Active Substance: METHOTREXATE
     Indication: PRODUCT USED FOR UNKNOWN INDICATION
     Dosage: 15 MG, D1, D8, D15
     Route: 037
     Dates: start: 20161114, end: 20161128
  5. AMN107 [Suspect]
     Active Substance: NILOTINIB
     Dosage: 400 MG, BID  D1 TO D21
     Route: 048
     Dates: start: 20161221
  6. VINCRISTINE [Suspect]
     Active Substance: VINCRISTINE
     Indication: CHEMOTHERAPY
     Dosage: 2 MG, ON D1, D8, D15
     Route: 042
     Dates: start: 20161114, end: 20161128
  7. DEPO-MEDROL [Concomitant]
     Active Substance: METHYLPREDNISOLONE ACETATE
     Indication: PRODUCT USED FOR UNKNOWN INDICATION
     Dosage: 40 MG,  D1, D8, D15
     Route: 037
     Dates: start: 20161114, end: 20161128

REACTIONS (3)
  - Pulmonary embolism [Recovered/Resolved]
  - Malnutrition [Recovered/Resolved]
  - Septic shock [Recovered/Resolved with Sequelae]

NARRATIVE: CASE EVENT DATE: 20161204
